FAERS Safety Report 7270396-4 (Version None)
Quarter: 2011Q1

REPORT INFORMATION
  Report Type: 
  Country: None (occurrence: None)
  Receive Date: 20110202
  Receipt Date: 20110120
  Transmission Date: 20110831
  Serious: Yes (Hospitalization)
  Sender: FDA-Public Use
  Company Number: DE-ELI_LILLY_AND_COMPANY-DE201101005165

PATIENT
  Sex: Female
  Weight: 70 kg

DRUGS (7)
  1. APREPITANT [Concomitant]
     Dosage: 125 MG, UNKNOWN
     Route: 048
     Dates: start: 20101229
  2. APREPITANT [Concomitant]
     Dosage: 80 MG, UNKNOWN
     Dates: start: 20101230
  3. FOLSAN [Concomitant]
     Dosage: 0.4 MG, UNK
     Route: 048
     Dates: start: 20101220
  4. PEMETREXED [Suspect]
     Dosage: 810 MG, UNKNOWN
     Route: 042
     Dates: start: 20101229
  5. DEXAMETHASONE [Concomitant]
     Dosage: 8 MG, UNK
     Dates: start: 20101229
  6. CISPLATIN [Concomitant]
     Indication: NON-SMALL CELL LUNG CANCER METASTATIC
     Dosage: 120 MG, UNKNOWN
     Route: 042
     Dates: start: 20101229
  7. PAMIDRONATE DISODIUM [Concomitant]
     Dosage: 90 MG, UNKNOWN
     Route: 042
     Dates: start: 20101218, end: 20101218

REACTIONS (5)
  - ABDOMINAL DISCOMFORT [None]
  - HOSPITALISATION [None]
  - DIARRHOEA [None]
  - NAUSEA [None]
  - RASH [None]
